FAERS Safety Report 19037086 (Version 1)
Quarter: 2021Q1

REPORT INFORMATION
  Report Type: Spontaneous
  Country: US (occurrence: US)
  Receive Date: 20210322
  Receipt Date: 20210322
  Transmission Date: 20210420
  Serious: No
  Sender: FDA-Public Use
  Company Number: None

PATIENT
  Age: 41 Year
  Sex: Male
  Weight: 99.34 kg

DRUGS (1)
  1. VENLAFAXINE 150MG ER [Suspect]
     Active Substance: VENLAFAXINE HYDROCHLORIDE
     Indication: ANXIETY
     Dosage: IN THE MORNING
     Route: 048
     Dates: start: 20210313

REACTIONS (6)
  - Dyspnoea [None]
  - Dizziness [None]
  - Gastric disorder [None]
  - Disturbance in attention [None]
  - Palpitations [None]
  - Anxiety [None]

NARRATIVE: CASE EVENT DATE: 20210317
